FAERS Safety Report 4613840-0 (Version None)
Quarter: 2005Q1

REPORT INFORMATION
  Report Type: 
  Country: None (occurrence: None)
  Receive Date: 20050321
  Receipt Date: 20050309
  Transmission Date: 20050727
  Serious: Yes (Hospitalization, Other)
  Sender: FDA-Public Use
  Company Number: CH-BRISTOL-MYERS SQUIBB COMPANY-12893145

PATIENT
  Age: 83 Year
  Sex: Male

DRUGS (18)
  1. LOPIRIN TABS [Suspect]
     Route: 048
     Dates: start: 20050216, end: 20050223
  2. SELIPRAN TABS 20 MG [Suspect]
     Dosage: LONG-TERM USE
     Route: 048
  3. EPRIL [Suspect]
     Route: 048
     Dates: start: 20050223, end: 20050224
  4. PREDNISONE [Suspect]
     Route: 048
     Dates: start: 20050220, end: 20050224
  5. LASIX [Suspect]
     Route: 041
     Dates: start: 20050219, end: 20050223
  6. AUGMENTIN '125' [Suspect]
     Dosage: 625MG (500MG/125MG COATED FILM TABLETS) 3 PER DAY
     Route: 048
     Dates: start: 20050219, end: 20050225
  7. COZAAR [Suspect]
     Route: 048
     Dates: start: 20050224, end: 20050225
  8. KLACID [Suspect]
     Dosage: 500MG COATED FILM TABLETS 2 PER DAY
     Route: 048
     Dates: start: 20050221, end: 20050225
  9. LIQUEMIN N [Concomitant]
     Route: 058
     Dates: start: 20050219
  10. PLAVIX [Concomitant]
     Route: 048
     Dates: start: 20050220
  11. RIVOTRIL [Concomitant]
     Dosage: 0.5MG STRENGTH; 0.75MG 2 PER DAY;LONG-TERM USE.
     Route: 048
  12. TEMGESIC [Concomitant]
     Dosage: LONG-TERM USE
     Route: 060
  13. ATARAX [Concomitant]
     Dosage: FILM COATED TABLETS; LONG-TERM USE
     Route: 048
  14. ELTROXIN [Concomitant]
     Dosage: 50 UG STRENGTH; 0.05MG 1 PER DAY; LONG-TERM USE
     Route: 048
  15. NEXIUM [Concomitant]
     Dosage: 22.3 MG STRENGTH; 20MG PER 1 DAY; LONG-TERM USE
     Route: 048
  16. TRINITRINE [Concomitant]
     Dosage: LONG-TERM USE
     Route: 062
  17. TRINITRINE [Concomitant]
     Route: 062
  18. TOREM [Concomitant]
     Dosage: LONG-TERM USE
     Route: 048

REACTIONS (4)
  - ACUTE PULMONARY OEDEMA [None]
  - HYPERTENSION [None]
  - PANCREATITIS [None]
  - TROPONIN INCREASED [None]
